FAERS Safety Report 5077885-1 (Version None)
Quarter: 2006Q3

REPORT INFORMATION
  Report Type: 
  Country: None (occurrence: None)
  Receive Date: 20060720
  Receipt Date: 20050517
  Transmission Date: 20061208
  Serious: Yes (Other)
  Sender: FDA-Public Use
  Company Number: 05GER0121

PATIENT
  Age: 84 Year
  Sex: Female

DRUGS (5)
  1. AGGRASTAT [Suspect]
     Indication: ACUTE CORONARY SYNDROME
     Dates: start: 20040815
  2. CLOPIDOGREL BISULFATE [Suspect]
     Indication: ACUTE CORONARY SYNDROME
     Dates: start: 20040815
  3. HEPARIN [Concomitant]
  4. ANTIHYPERTENSIVE (ANTIHYPERTENSIVES) [Concomitant]
  5. NITROGLYCERIN [Concomitant]

REACTIONS (5)
  - ANAEMIA MACROCYTIC [None]
  - DIZZINESS [None]
  - PETECHIAE [None]
  - THROMBOCYTOPENIA [None]
  - TINNITUS [None]
